FAERS Safety Report 5377860-3 (Version None)
Quarter: 2007Q3

REPORT INFORMATION
  Report Type: 
  Country: None (occurrence: None)
  Receive Date: 20070703
  Receipt Date: 20070626
  Transmission Date: 20080115
  Serious: Yes (Other)
  Sender: FDA-Public Use
  Company Number: BR-PFIZER INC-2007053669

PATIENT
  Sex: Male
  Weight: 82 kg

DRUGS (4)
  1. CAVERJECT POWDER, STERILE [Suspect]
     Indication: ERECTILE DYSFUNCTION
  2. ALL OTHER THERAPEUTIC PRODUCTS [Concomitant]
     Indication: ERECTILE DYSFUNCTION
     Route: 048
     Dates: start: 20061201, end: 20070501
  3. ALL OTHER THERAPEUTIC PRODUCTS [Concomitant]
     Indication: CARDIAC DISORDER
     Route: 048
  4. VITAMIN B COMPLEX CAP [Concomitant]
     Route: 048

REACTIONS (4)
  - BLOOD GLUCOSE INCREASED [None]
  - DRUG INEFFECTIVE [None]
  - HERNIA REPAIR [None]
  - SLEEP DISORDER [None]
